FAERS Safety Report 25172050 (Version 1)
Quarter: 2025Q2

REPORT INFORMATION
  Report Type: Spontaneous
  Country: US (occurrence: MN)
  Receive Date: 20250408
  Receipt Date: 20250408
  Transmission Date: 20250716
  Serious: Yes (Other)
  Sender: RANBAXY
  Company Number: US-SUN PHARMACEUTICAL INDUSTRIES LTD-2025RR-501621

PATIENT
  Age: 36 Year
  Sex: Female

DRUGS (10)
  1. CLOMIPRAMINE [Suspect]
     Active Substance: CLOMIPRAMINE
     Indication: Depression
     Dosage: 150 MILLIGRAM, DAILY
     Route: 065
  2. GABAPENTIN [Suspect]
     Active Substance: GABAPENTIN
     Indication: Depression
     Dosage: 1200 MILLIGRAM, BID
     Route: 065
  3. ATOMOXETINE [Suspect]
     Active Substance: ATOMOXETINE
     Indication: Depression
     Route: 065
  4. PROPOFOL [Suspect]
     Active Substance: PROPOFOL
     Indication: Seizure
     Route: 040
  5. PROPOFOL [Suspect]
     Active Substance: PROPOFOL
     Route: 040
  6. PROPOFOL [Suspect]
     Active Substance: PROPOFOL
     Route: 041
  7. LORAZEPAM [Suspect]
     Active Substance: LORAZEPAM
     Indication: Seizure
     Route: 042
  8. DIAZEPAM [Suspect]
     Active Substance: DIAZEPAM
     Indication: Seizure
     Route: 042
  9. LACOSAMIDE [Suspect]
     Active Substance: LACOSAMIDE
     Indication: Seizure
     Dosage: 100 MILLIGRAM, BID
     Route: 065
  10. LITHIUM [Suspect]
     Active Substance: LITHIUM
     Indication: Suicidal ideation
     Route: 065

REACTIONS (4)
  - Drug ineffective [Unknown]
  - Weight increased [Unknown]
  - Depressive symptom [Unknown]
  - Suicidal ideation [Unknown]
